FAERS Safety Report 14240334 (Version 2)
Quarter: 2017Q4

REPORT INFORMATION
  Report Type: Spontaneous
  Country: US (occurrence: US)
  Receive Date: 20171130
  Receipt Date: 20171206
  Transmission Date: 20180321
  Serious: Yes (Death)
  Sender: FDA-Public Use
  Company Number: US-FRESENIUS MEDICAL CARE RENAL THERAPIES GROUP-FMC-1711-001492

PATIENT
  Age: 70 Year
  Sex: Female
  Weight: 55 kg

DRUGS (16)
  1. ERGOCALCIFEROL. [Concomitant]
     Active Substance: ERGOCALCIFEROL
     Dosage: 50,000 UNIT PER ORAL 1 CAPSULE ONCE A WEEK
  2. METOPROLOL. [Concomitant]
     Active Substance: METOPROLOL
     Route: 048
  3. ATORVASTATIN [Concomitant]
     Active Substance: ATORVASTATIN
  4. POTASSIUM CHLORIDE. [Concomitant]
     Active Substance: POTASSIUM CHLORIDE
  5. RENAPLEX [Concomitant]
     Dosage: ONE TABLET ONCE PER DAY
  6. RENVELA [Concomitant]
     Active Substance: SEVELAMER CARBONATE
  7. SODIUM BICARBONATE. [Concomitant]
     Active Substance: SODIUM BICARBONATE
  8. DELFLEX WITH DEXTROSE 1.5% LOW MAGNESIUM LOW CALCIUM [Suspect]
     Active Substance: CALCIUM CHLORIDE\DEXTROSE\MAGNESIUM CHLORIDE\SODIUM CHLORIDE\SODIUM LACTATE
     Indication: END STAGE RENAL DISEASE
     Dosage: CCPD EDW 55KG 4 EXCHANGES 200 ML FILL 1 HOUR AND 20 MIN DWELL NO LAST FILL 1.5% DEXTROSE
     Route: 033
  9. CALCITRIOL. [Concomitant]
     Active Substance: CALCITRIOL
  10. COUMADIN [Concomitant]
     Active Substance: WARFARIN SODIUM
     Route: 048
  11. ISOSORBIDE. [Concomitant]
     Active Substance: ISOSORBIDE
     Route: 048
  12. ZYRTEC [Concomitant]
     Active Substance: CETIRIZINE HYDROCHLORIDE
  13. ALDACTONE [Concomitant]
     Active Substance: SPIRONOLACTONE
     Route: 048
  14. GENTAMICIN. [Concomitant]
     Active Substance: GENTAMICIN
     Dosage: APPLY SMALL AMOUNT ONCE PER DAY
  15. HUMULIN NOS [Concomitant]
     Active Substance: INSULIN HUMAN
     Dosage: 100 UNIT/ML: SUB Q 20 UNIT EVERY MORNING
  16. MEGESTROL [Concomitant]
     Active Substance: MEGESTROL

REACTIONS (1)
  - Death [Fatal]

NARRATIVE: CASE EVENT DATE: 20171123
